FAERS Safety Report 23878385 (Version 2)
Quarter: 2024Q2

REPORT INFORMATION
  Report Type: Spontaneous
  Country: US (occurrence: US)
  Receive Date: 20240521
  Receipt Date: 20240522
  Transmission Date: 20240716
  Serious: Yes (Other)
  Sender: FDA-Public Use
  Company Number: US-JNJFOC-20240539023

PATIENT
  Sex: Female

DRUGS (2)
  1. MOTRIN [Suspect]
     Active Substance: IBUPROFEN
     Indication: Pain
     Route: 065
     Dates: start: 202404, end: 20240507
  2. MOTRIN [Suspect]
     Active Substance: IBUPROFEN
     Dosage: ADDITIONAL 200 MG OF IBUPROFEN 1 DOSE
     Route: 065
     Dates: end: 20240507

REACTIONS (7)
  - Inappropriate schedule of product administration [Unknown]
  - Paralysis [Unknown]
  - Overdose [Unknown]
  - Fatigue [Unknown]
  - Depression [Unknown]
  - Nightmare [Unknown]
  - Diarrhoea [Unknown]

NARRATIVE: CASE EVENT DATE: 20240401
